FAERS Safety Report 23826443 (Version 2)
Quarter: 2025Q2

REPORT INFORMATION
  Report Type: Spontaneous
  Country: US (occurrence: US)
  Receive Date: 20240507
  Receipt Date: 20250515
  Transmission Date: 20250716
  Serious: No
  Sender: UCB
  Company Number: US-UCBSA-2024003474

PATIENT
  Sex: Female
  Weight: 63.946 kg

DRUGS (1)
  1. CIMZIA [Suspect]
     Active Substance: CERTOLIZUMAB PEGOL
     Indication: Rheumatoid arthritis
     Dosage: 200 MILLIGRAM, EV 2 WEEKS(QOW) (INJECT 200MG (1 SYRINGE) SUBCUTANEOUSLY EVERY OTHER WEEK AS DIRECTED
     Route: 058
     Dates: start: 201512

REACTIONS (3)
  - Arthralgia [Unknown]
  - Therapeutic response shortened [Unknown]
  - Limb injury [Unknown]
